FAERS Safety Report 9648189 (Version 2)
Quarter: 2013Q4

REPORT INFORMATION
  Report Type: Report from Study
  Country: CA (occurrence: CA)
  Receive Date: 20131028
  Receipt Date: 20131028
  Transmission Date: 20140711
  Serious: Yes (Death)
  Sender: FDA-Public Use
  Company Number: PHHY2013CA082828

PATIENT
  Age: 66 Year
  Sex: Male

DRUGS (2)
  1. SANDOSTATIN LAR [Suspect]
     Indication: NEOPLASM MALIGNANT
     Dosage: 20 MG, ONCE A MONTH
     Route: 030
     Dates: start: 20130627
  2. SANDOSTATIN LAR [Suspect]
     Dosage: 10 MG, EVERY 04 WEEKS
     Route: 030
     Dates: end: 20130827

REACTIONS (4)
  - Death [Fatal]
  - Blood pressure systolic increased [Unknown]
  - Memory impairment [Unknown]
  - Heart rate increased [Unknown]
